FAERS Safety Report 11380048 (Version 1)
Quarter: 2015Q3

REPORT INFORMATION
  Report Type: Spontaneous
  Country: JP (occurrence: JP)
  Receive Date: 20150814
  Receipt Date: 20150814
  Transmission Date: 20151125
  Serious: Yes (Death)
  Sender: FDA-Public Use
  Company Number: PHJP2015JP013805

PATIENT
  Age: 90 Year
  Sex: Male

DRUGS (1)
  1. SANDOSTATINA LAR IM INJECTION [Suspect]
     Active Substance: OCTREOTIDE ACETATE
     Indication: NEUROENDOCRINE TUMOUR
     Dosage: 10 MG
     Route: 030
     Dates: end: 201507

REACTIONS (1)
  - Fall [Fatal]

NARRATIVE: CASE EVENT DATE: 201507
